FAERS Safety Report 6167733-0 (Version None)
Quarter: 2009Q2

REPORT INFORMATION
  Report Type: 
  Country: None (occurrence: None)
  Receive Date: 20090427
  Receipt Date: 20090417
  Transmission Date: 20091009
  Serious: Yes (Other)
  Sender: FDA-Public Use
  Company Number: BE-WYE-H09092409

PATIENT

DRUGS (1)
  1. CORDARONE [Suspect]
     Indication: SINUS TACHYCARDIA
     Route: 042

REACTIONS (1)
  - SHOCK [None]
